FAERS Safety Report 9132208 (Version 1)
Quarter: 2013Q1

REPORT INFORMATION
  Report Type: Spontaneous
  Country: US (occurrence: US)
  Receive Date: 20130107
  Receipt Date: 20130107
  Transmission Date: 20140127
  Serious: No
  Sender: FDA-Public Use
  Company Number: US-ASTRAZENECA-2012SE96273

PATIENT
  Sex: Female
  Weight: 49.9 kg

DRUGS (6)
  1. ATENOLOL [Suspect]
     Route: 048
  2. ENTOCORT EC [Suspect]
     Indication: CONSTIPATION
     Route: 048
  3. ENTOCORT EC [Suspect]
     Indication: DIARRHOEA
     Route: 048
  4. ASA [Concomitant]
  5. MAGNESIUM [Concomitant]
  6. NORVASC [Concomitant]

REACTIONS (5)
  - Blood pressure increased [Unknown]
  - Insomnia [Unknown]
  - Amnesia [Unknown]
  - Weight decreased [Unknown]
  - Off label use [Unknown]
